FAERS Safety Report 5383695-8 (Version None)
Quarter: 2007Q3

REPORT INFORMATION
  Report Type: 
  Country: None (occurrence: None)
  Receive Date: 20070705
  Receipt Date: 20061004
  Transmission Date: 20080115
  Serious: Yes (Other)
  Sender: FDA-Public Use
  Company Number: QST_00014_2007

PATIENT
  Age: 38 Year
  Sex: Female
  Weight: 70.3075 kg

DRUGS (8)
  1. H P ACTHAR [Suspect]
     Indication: MULTIPLE SCLEROSIS
     Dosage: (80 IU QD X1 WEEK, FOLLOWED BY TAPER SUBCUTANEOUS)
     Route: 058
     Dates: start: 20060929
  2. AVONEX [Concomitant]
  3. BACLOFEN [Concomitant]
  4. NEURONTIN [Concomitant]
  5. VESICARE [Concomitant]
  6. ZANAFLEX [Concomitant]
  7. KLONOPIN [Concomitant]
  8. HORMONAL CONTRACEPTIVES FOR SYSTEMIC USE [Concomitant]

REACTIONS (1)
  - ORAL CANDIDIASIS [None]
